FAERS Safety Report 11671525 (Version 1)
Quarter: 2015Q4

REPORT INFORMATION
  Report Type: Report from Study
  Country: JP (occurrence: JP)
  Receive Date: 20151028
  Receipt Date: 20151028
  Transmission Date: 20160304
  Serious: Yes (Hospitalization)
  Sender: FDA-Public Use
  Company Number: JP-ROCHE-1647340

PATIENT
  Age: 51 Year
  Sex: Male

DRUGS (3)
  1. CAPECITABINE. [Suspect]
     Active Substance: CAPECITABINE
     Indication: COLON CANCER
     Dosage: DOSAGE IS UNCERTAIN. ?THREE COURSES, MEDICINES IS TAKEN UNTIL THE MORNING OF THREE COURSES AND THE E
     Route: 048
     Dates: start: 20150820, end: 2015
  2. BEVACIZUMAB [Suspect]
     Active Substance: BEVACIZUMAB
     Indication: COLON CANCER
     Dosage: DOSAGE IS UNCERTAIN. ?THREE COURSES
     Route: 041
     Dates: start: 20150820, end: 2015
  3. OXALIPLATIN. [Suspect]
     Active Substance: OXALIPLATIN
     Indication: COLON CANCER
     Dosage: DOSAGE IS UNCERTAIN. ?THREE COURSES
     Route: 041
     Dates: start: 20150820, end: 2015

REACTIONS (1)
  - Pyrexia [Recovered/Resolved]

NARRATIVE: CASE EVENT DATE: 20151004
